FAERS Safety Report 12140407 (Version 4)
Quarter: 2017Q4

REPORT INFORMATION
  Report Type: Report from Study
  Country: GR (occurrence: GR)
  Receive Date: 20160303
  Receipt Date: 20171130
  Transmission Date: 20180320
  Serious: Yes (Death, Hospitalization)
  Sender: FDA-Public Use
  Company Number: PHHY2016GR020712

PATIENT
  Age: 79 Year
  Sex: Female

DRUGS (7)
  1. PROMETAX [Suspect]
     Active Substance: RIVASTIGMINE
     Indication: DEMENTIA ALZHEIMER^S TYPE
     Dosage: 9.5 MG, QD PATCH 10 (CM)2
     Route: 062
  2. GLUCOPHAGE [Concomitant]
     Active Substance: METFORMIN HYDROCHLORIDE
     Indication: DIABETES MELLITUS
     Dosage: 0.5 DF
     Route: 048
     Dates: start: 201506
  3. PRADAXA [Concomitant]
     Active Substance: DABIGATRAN ETEXILATE MESYLATE
     Indication: ARRHYTHMIA
     Dosage: 110 MG, BID
     Route: 048
     Dates: start: 2011
  4. ZARATOR//ATORVASTATIN [Concomitant]
     Indication: HYPERLIPIDAEMIA
     Dosage: 40 MG, QD
     Route: 048
     Dates: start: 2013
  5. BOCACORT S [Concomitant]
     Indication: CHRONIC OBSTRUCTIVE PULMONARY DISEASE
     Dosage: 250 MG, QD
     Route: 055
     Dates: start: 2012
  6. PROPAFENONE HCL [Concomitant]
     Active Substance: PROPAFENONE HYDROCHLORIDE
     Indication: ARRHYTHMIA
     Dosage: 150 MG, BID
     Route: 048
     Dates: start: 2011
  7. KARVEA [Concomitant]
     Active Substance: IRBESARTAN
     Indication: HYPERTENSION
     Dosage: 0.5 DF
     Route: 048
     Dates: start: 2012

REACTIONS (6)
  - Concomitant disease aggravated [Fatal]
  - Arrhythmia [Fatal]
  - Skin irritation [Recovered/Resolved]
  - Skin irritation [Unknown]
  - Tachycardia [Fatal]
  - Palpitations [Fatal]

NARRATIVE: CASE EVENT DATE: 201510
